FAERS Safety Report 6034640-3 (Version None)
Quarter: 2009Q1

REPORT INFORMATION
  Report Type: 
  Country: None (occurrence: None)
  Receive Date: 20090109
  Receipt Date: 20090109
  Transmission Date: 20090719
  Serious: No
  Sender: FDA-Public Use
  Company Number: None

PATIENT
  Sex: Female

DRUGS (8)
  1. ZOMETA [Suspect]
     Indication: MULTIPLE MYELOMA
     Dosage: 4 MG MONTHLY IV
     Route: 042
     Dates: start: 20020901, end: 20060901
  2. PYRIDOSTIGMINE BROMIDE [Concomitant]
  3. DILTIAZEM [Concomitant]
  4. LISINOPRIL [Concomitant]
  5. METOPROLOL TARTRATE [Concomitant]
  6. LASIX [Concomitant]
  7. THEOPHYLLINE [Concomitant]
  8. PREDNISONE [Concomitant]

REACTIONS (2)
  - BONE DISORDER [None]
  - POST PROCEDURAL DISCHARGE [None]
